FAERS Safety Report 24026547 (Version 2)
Quarter: 2024Q2

REPORT INFORMATION
  Report Type: Report from Study
  Country: US (occurrence: US)
  Receive Date: 20240628
  Receipt Date: 20240628
  Transmission Date: 20240716
  Serious: No
  Sender: FDA-Public Use
  Company Number: US-ROCHE-3536783

PATIENT
  Age: 71 Year
  Sex: Female

DRUGS (1)
  1. ALECENSA [Suspect]
     Active Substance: ALECTINIB HYDROCHLORIDE
     Indication: Lung neoplasm malignant
     Dosage: 2 CAPSULES BY MOUTH (300MG) TWICE A DAY WITH FOOD
     Route: 048

REACTIONS (6)
  - Influenza [Unknown]
  - Ear infection [Unknown]
  - Pharyngitis streptococcal [Unknown]
  - Depressed mood [Unknown]
  - Confusional state [Unknown]
  - Illness [Unknown]
